FAERS Safety Report 13167057 (Version 1)
Quarter: 2017Q1

REPORT INFORMATION
  Report Type: Report from Study
  Country: US (occurrence: US)
  Receive Date: 20170131
  Receipt Date: 20170131
  Transmission Date: 20170428
  Serious: Yes (Other)
  Sender: FDA-Public Use
  Company Number: PHEH2017US002909

PATIENT
  Sex: Female

DRUGS (1)
  1. TYKERB [Suspect]
     Active Substance: LAPATINIB DITOSYLATE
     Indication: PRODUCT USED FOR UNKNOWN INDICATION
     Dosage: 250 MG, UNK (2 AND 1/2 A DAY)
     Route: 048

REACTIONS (6)
  - Dehydration [Unknown]
  - Vomiting [Unknown]
  - Meningitis [Unknown]
  - Herpes zoster [Unknown]
  - Diarrhoea [Unknown]
  - Nausea [Unknown]
